FAERS Safety Report 10038022 (Version 1)
Quarter: 2014Q1

REPORT INFORMATION
  Report Type: Spontaneous
  Country: US (occurrence: None)
  Receive Date: 20140306
  Receipt Date: 20140306
  Transmission Date: 20141002
  Serious: Yes (Hospitalization, Other)
  Sender: FDA-Public Use
  Company Number: 163-21880-13102261

PATIENT
  Age: 64 Year
  Sex: Female

DRUGS (2)
  1. REVLIMID (LENALIDOMIDE) (15 MILLIGRAM, CAPSULES) [Suspect]
     Indication: PLASMA CELL MYELOMA
     Route: 048
     Dates: start: 201305, end: 2013
  2. CHEMOTHERAPY (CHEMOTHERAPEUTICS) [Concomitant]

REACTIONS (3)
  - Rectal haemorrhage [None]
  - Anaemia [None]
  - Vomiting [None]
